FAERS Safety Report 6256384-5 (Version None)
Quarter: 2009Q3

REPORT INFORMATION
  Report Type: 
  Country: None (occurrence: None)
  Receive Date: 20090706
  Receipt Date: 20090630
  Transmission Date: 20100115
  Serious: No
  Sender: FDA-Public Use
  Company Number: US-B.I. PHARMACEUTICALS,INC./RIDGEFIELD-2009-BP-07877BP

PATIENT
  Sex: Male

DRUGS (3)
  1. SPIRIVA [Suspect]
     Indication: ASTHMA
     Dosage: 18 MG
     Route: 055
     Dates: start: 20090527
  2. SPIRIVA [Suspect]
     Indication: EMPHYSEMA
  3. BETAPACE [Concomitant]
     Indication: ATRIAL FLUTTER

REACTIONS (3)
  - DRY MOUTH [None]
  - DYSARTHRIA [None]
  - SWOLLEN TONGUE [None]
